FAERS Safety Report 24272105 (Version 2)
Quarter: 2025Q1

REPORT INFORMATION
  Report Type: Spontaneous
  Country: DE (occurrence: DE)
  Receive Date: 20240902
  Receipt Date: 20250214
  Transmission Date: 20250408
  Serious: Yes (Disabling, Other)
  Sender: ALK-ABELLO
  Company Number: None

PATIENT

DRUGS (8)
  1. ACARIZAX [Suspect]
     Active Substance: DERMATOPHAGOIDES FARINAE\DERMATOPHAGOIDES PTERONYSSINUS
     Indication: Mite allergy
     Route: 060
     Dates: start: 20240507, end: 20240508
  2. ACARIZAX [Suspect]
     Active Substance: DERMATOPHAGOIDES FARINAE\DERMATOPHAGOIDES PTERONYSSINUS
     Indication: Rhinitis allergic
  3. ACARIZAX [Suspect]
     Active Substance: DERMATOPHAGOIDES FARINAE\DERMATOPHAGOIDES PTERONYSSINUS
     Indication: Asthma
  4. MOMETASONE [Concomitant]
     Active Substance: MOMETASONE
     Indication: Nasal polyps
     Route: 045
     Dates: start: 202402
  5. MOMETASONE [Concomitant]
     Active Substance: MOMETASONE
     Indication: Nasal polyps
  6. ALLERGODIL AKUT [Concomitant]
     Indication: Rhinitis allergic
     Route: 045
     Dates: start: 202311
  7. CHOLECALCIFEROL [Concomitant]
     Active Substance: CHOLECALCIFEROL
     Indication: Vitamin D deficiency
     Route: 048
     Dates: start: 2022
  8. CETIRIZINE HYDROCHLORIDE [Concomitant]
     Active Substance: CETIRIZINE HYDROCHLORIDE
     Indication: Angioedema
     Route: 048
     Dates: start: 20240509

REACTIONS (4)
  - Oedema mucosal [Recovered/Resolved]
  - Lip swelling [Recovered/Resolved]
  - Visual impairment [Not Recovered/Not Resolved]
  - Vitreous opacities [Not Recovered/Not Resolved]

NARRATIVE: CASE EVENT DATE: 20240507
